FAERS Safety Report 6130262-4 (Version None)
Quarter: 2009Q1

REPORT INFORMATION
  Report Type: 
  Country: None (occurrence: None)
  Receive Date: 20090324
  Receipt Date: 20090318
  Transmission Date: 20090719
  Serious: Yes (Hospitalization, Other)
  Sender: FDA-Public Use
  Company Number: PHHY2009US10339

PATIENT
  Age: 71 Year
  Sex: Male

DRUGS (4)
  1. CYCLOSPORINE [Suspect]
     Indication: APLASTIC ANAEMIA
     Dosage: 420 MG, BID
  2. CYCLOSPORINE [Suspect]
     Dosage: 350 MG, BID
  3. ANTI-THYMOCYTE GLOBULIN NOS [Concomitant]
     Indication: APLASTIC ANAEMIA
  4. METHYLPREDNISOLONE 4MG TAB [Concomitant]
     Indication: APLASTIC ANAEMIA

REACTIONS (5)
  - BLOOD GLUCOSE INCREASED [None]
  - DEHYDRATION [None]
  - DIABETES MELLITUS [None]
  - HYPOPHAGIA [None]
  - IMMUNOSUPPRESSANT DRUG LEVEL INCREASED [None]
